FAERS Safety Report 8087532-2 (Version None)
Quarter: 2012Q1

REPORT INFORMATION
  Report Type: 
  Country: None (occurrence: None)
  Receive Date: 20120128
  Receipt Date: 20110408
  Transmission Date: 20120608
  Serious: No
  Sender: FDA-Public Use
  Company Number: US-ABBOTT-11P-163-0717853-00

PATIENT
  Age: 36 Year
  Sex: Female

DRUGS (2)
  1. LISINOPRIL [Concomitant]
     Indication: HYPERTENSION
     Dosage: 20MG DAILY
  2. HUMIRA [Suspect]
     Indication: PSORIATIC ARTHROPATHY
     Dates: start: 20110101, end: 20110220

REACTIONS (5)
  - DRUG ADMINISTRATION ERROR [None]
  - INJECTION SITE PAIN [None]
  - PSORIATIC ARTHROPATHY [None]
  - NASOPHARYNGITIS [None]
  - HEADACHE [None]
